FAERS Safety Report 6642358-9 (Version None)
Quarter: 2010Q1

REPORT INFORMATION
  Report Type: 
  Country: None (occurrence: None)
  Receive Date: 20100319
  Receipt Date: 20100311
  Transmission Date: 20100710
  Serious: Yes (Other)
  Sender: FDA-Public Use
  Company Number: SE-ROCHE-690477

PATIENT
  Age: 75 Year
  Sex: Female

DRUGS (3)
  1. ACTEMRA [Suspect]
     Indication: RHEUMATOID ARTHRITIS
     Dosage: DOSE: 680MG3.
     Route: 042
     Dates: start: 20091028, end: 20091222
  2. METHOTREXATE [Concomitant]
  3. PREDNISOLON [Concomitant]

REACTIONS (3)
  - AMNESIA [None]
  - ENCEPHALOPATHY [None]
  - NERVOUS SYSTEM NEOPLASM BENIGN [None]
